FAERS Safety Report 16903013 (Version 2)
Quarter: 2019Q4

REPORT INFORMATION
  Report Type: Report from Study
  Country: US (occurrence: US)
  Receive Date: 20191010
  Receipt Date: 20191108
  Transmission Date: 20200122
  Serious: Yes (Other)
  Sender: FDA-Public Use
  Company Number: US-PFIZER INC-2019232753

PATIENT
  Age: 58 Year
  Sex: Female

DRUGS (1)
  1. IBRANCE [Suspect]
     Active Substance: PALBOCICLIB
     Indication: BREAST CANCER FEMALE
     Dosage: 125 MG, CYCLIC (DAILY 21 DAYS ON AND 7 DAYS OFF)
     Route: 048
     Dates: start: 20190511

REACTIONS (21)
  - Rash pruritic [Recovering/Resolving]
  - Blood creatinine increased [Unknown]
  - Dizziness postural [Unknown]
  - Leukopenia [Unknown]
  - Product dose omission [Unknown]
  - Vaginal haemorrhage [Unknown]
  - Nasopharyngitis [Recovering/Resolving]
  - Upper-airway cough syndrome [Recovering/Resolving]
  - Night sweats [Unknown]
  - Full blood count decreased [Unknown]
  - Feeling hot [Unknown]
  - Bone marrow failure [Recovering/Resolving]
  - Peripheral swelling [Unknown]
  - Vulvovaginal pruritus [Unknown]
  - Oropharyngeal pain [Recovering/Resolving]
  - Rash [Recovering/Resolving]
  - Muscle spasms [Unknown]
  - Nausea [Recovering/Resolving]
  - Fatigue [Not Recovered/Not Resolved]
  - Pruritus [Not Recovered/Not Resolved]
  - Diarrhoea [Recovered/Resolved]

NARRATIVE: CASE EVENT DATE: 2019
